FAERS Safety Report 9285346 (Version 2)
Quarter: 2013Q2

REPORT INFORMATION
  Report Type: Spontaneous
  Country: US (occurrence: US)
  Receive Date: 20130513
  Receipt Date: 20130612
  Transmission Date: 20140414
  Serious: Yes (Death)
  Sender: FDA-Public Use
  Company Number: US-ASTELLAS-2013US004828

PATIENT
  Age: 69 Year
  Sex: Male
  Weight: 80 kg

DRUGS (1)
  1. XTANDI [Suspect]
     Indication: PROSTATE CANCER
     Dosage: 160 MG, UID/QD
     Route: 048
     Dates: start: 20121004, end: 20130425

REACTIONS (7)
  - Death [Fatal]
  - Diarrhoea [Unknown]
  - Fatigue [Unknown]
  - Oedema peripheral [Unknown]
  - Pain [Unknown]
  - Hypoaesthesia [Unknown]
  - Muscular weakness [Unknown]
